FAERS Safety Report 8199908 (Version 3)
Quarter: 2014Q1

REPORT INFORMATION
  Report Type: Spontaneous
  Country: US (occurrence: US)
  Receive Date: 20111026
  Receipt Date: 20140326
  Transmission Date: 20141002
  Serious: Yes (Other)
  Sender: FDA-Public Use
  Company Number: US-BAYER-2011-102004

PATIENT
  Age: 10 Year
  Sex: Female

DRUGS (15)
  1. YAZ [Suspect]
     Indication: CONTRACEPTION
     Dosage: UNK
     Route: 048
     Dates: start: 2007, end: 2010
  2. YASMIN [Suspect]
     Dosage: UNK
     Route: 048
     Dates: start: 2007, end: 2010
  3. GARDASIL [Concomitant]
  4. TORADOL [Concomitant]
     Dosage: 30 MG, UNK
     Route: 042
  5. TORADOL [Concomitant]
     Dosage: 30 MG, UNK
     Route: 042
  6. MORPHINE [Concomitant]
     Dosage: 6 MG, UNK
     Route: 042
  7. PHENERGAN [Concomitant]
     Dosage: 30 MG, UNK
     Route: 042
  8. PEPCID [Concomitant]
     Dosage: 20 MG, UNK
     Route: 042
  9. NEXIUM [Concomitant]
     Dosage: 40 MG, UNK
     Route: 042
  10. ZOFRAN [Concomitant]
     Dosage: 4 MG, UNK
     Route: 042
  11. VICODIN [Concomitant]
  12. DILAUDID [Concomitant]
     Dosage: 1 MG, UNK
     Route: 042
  13. HYDROMORPHONE [Concomitant]
     Dosage: 2 MG, UNK
     Route: 030
  14. ONDANSETRON [Concomitant]
     Dosage: 4 MG, UNK
  15. KETOROLAC [Concomitant]
     Dosage: 30 MG, UNK
     Route: 042

REACTIONS (2)
  - Nephrolithiasis [None]
  - Gallbladder injury [None]
